FAERS Safety Report 20280224 (Version 1)
Quarter: 2022Q1

REPORT INFORMATION
  Report Type: Spontaneous
  Country: AT (occurrence: AT)
  Receive Date: 20220103
  Receipt Date: 20220103
  Transmission Date: 20220424
  Serious: Yes (Other)
  Sender: FDA-Public Use
  Company Number: AT-NOVARTISPH-NVSC2020AT266779

PATIENT
  Age: 42 Year
  Sex: Female

DRUGS (3)
  1. TOPIRAMATE [Suspect]
     Active Substance: TOPIRAMATE
     Indication: Product used for unknown indication
     Dosage: 200 MG (UP TO 200 MG)
     Route: 065
  2. ASPIRIN [Suspect]
     Active Substance: ASPIRIN
     Indication: Product used for unknown indication
     Dosage: UNK
     Route: 065
  3. ERGOLOID MESYLATES [Suspect]
     Active Substance: ERGOLOID MESYLATES
     Indication: Product used for unknown indication
     Dosage: UNK
     Route: 065

REACTIONS (12)
  - Idiopathic intracranial hypertension [Unknown]
  - Major depression [Not Recovered/Not Resolved]
  - Medication overuse headache [Unknown]
  - Migraine [Unknown]
  - Headache [Unknown]
  - Tension headache [Unknown]
  - Sleep disorder [Unknown]
  - Anxiety [Unknown]
  - Nausea [Unknown]
  - Depression [Not Recovered/Not Resolved]
  - Weight increased [Unknown]
  - Drug ineffective [Unknown]
